FAERS Safety Report 4886679-9 (Version None)
Quarter: 2005Q4

REPORT INFORMATION
  Report Type: 
  Country: None (occurrence: None)
  Receive Date: 20051220
  Receipt Date: 20050406
  Transmission Date: 20060501
  Serious: Yes (Life-Threatening, Other)
  Sender: FDA-Public Use
  Company Number: HQWYE879208APR05

PATIENT
  Age: 49 Year
  Sex: Female
  Weight: 86.26 kg

DRUGS (3)
  1. EFFEXOR XR [Suspect]
     Indication: ANXIETY
     Dosage: 300 MG IN AM, 150 MG IN PM, ORAL
     Route: 048
     Dates: start: 20030101, end: 20050201
  2. EFFEXOR XR [Suspect]
     Indication: DEPRESSION
     Dosage: 300 MG IN AM, 150 MG IN PM, ORAL
     Route: 048
     Dates: start: 20030101, end: 20050201
  3. EFFEXOR XR [Suspect]
     Indication: POST-TRAUMATIC STRESS DISORDER
     Dosage: 300 MG IN AM, 150 MG IN PM, ORAL
     Route: 048
     Dates: start: 20030101, end: 20050201

REACTIONS (1)
  - MYOCARDIAL INFARCTION [None]
